FAERS Safety Report 5163944-1 (Version None)
Quarter: 2006Q4

REPORT INFORMATION
  Report Type: 
  Country: None (occurrence: None)
  Receive Date: 20061124
  Receipt Date: 20061114
  Transmission Date: 20070319
  Serious: Yes (Hospitalization, Other)
  Sender: FDA-Public Use
  Company Number: 2006112920

PATIENT
  Age: 49 Year
  Sex: Male
  Weight: 97.0698 kg

DRUGS (7)
  1. LIPITOR [Suspect]
     Indication: DYSLIPIDAEMIA
     Dosage: 20 MG (20 MG, 1 IN 1 D), ORAL
     Route: 048
     Dates: start: 20060630, end: 20060913
  2. ACETAMINOPHEN [Suspect]
     Indication: CORONARY ARTERY DISEASE
     Dates: end: 20060913
  3. ASPIRIN [Concomitant]
  4. ATACAND [Concomitant]
  5. CELEXA [Concomitant]
  6. ZYRTEC [Concomitant]
  7. PLAVIX [Concomitant]

REACTIONS (7)
  - ATRIAL SEPTAL DEFECT [None]
  - CORONARY ARTERY OCCLUSION [None]
  - HEPATITIS [None]
  - IN-STENT ARTERIAL RESTENOSIS [None]
  - MUSCULOSKELETAL CHEST PAIN [None]
  - REFUSAL OF TREATMENT BY PATIENT [None]
  - STENT OCCLUSION [None]
